FAERS Safety Report 5884823-8 (Version None)
Quarter: 2008Q3

REPORT INFORMATION
  Report Type: 
  Country: None (occurrence: None)
  Receive Date: 20080916
  Receipt Date: 20080908
  Transmission Date: 20090109
  Serious: Yes (Other)
  Sender: FDA-Public Use
  Company Number: US-AMGEN-QUU306275

PATIENT
  Sex: Female

DRUGS (3)
  1. ENBREL [Suspect]
     Indication: PSORIASIS
     Route: 058
     Dates: start: 20040521
  2. ENBREL [Suspect]
     Indication: PSORIATIC ARTHROPATHY
  3. TETANUS VACCINE [Concomitant]

REACTIONS (5)
  - DRUG INEFFECTIVE [None]
  - FACIAL PALSY [None]
  - HEADACHE [None]
  - INJECTION SITE REACTION [None]
  - PSORIASIS [None]
